FAERS Safety Report 4668065-X (Version None)
Quarter: 2005Q2

REPORT INFORMATION
  Report Type: 
  Country: None (occurrence: None)
  Receive Date: 20050520
  Receipt Date: 20041008
  Transmission Date: 20051028
  Serious: Yes (Death, Hospitalization)
  Sender: FDA-Public Use
  Company Number: DE-MERCK-0410DEU00265

PATIENT
  Age: 61 Year
  Sex: Male

DRUGS (1)
  1. VIOXX [Suspect]
     Indication: MUSCULOSKELETAL PAIN
     Route: 048
     Dates: start: 19990101

REACTIONS (15)
  - ARTHRITIS BACTERIAL [None]
  - AUTOIMMUNE DISORDER [None]
  - BURSITIS [None]
  - CARDIAC DISORDER [None]
  - DIABETES MELLITUS INSULIN-DEPENDENT [None]
  - DYSPNOEA [None]
  - GASTROENTERITIS SALMONELLA [None]
  - HEPATIC CIRRHOSIS [None]
  - HEPATITIS B [None]
  - LIVER DISORDER [None]
  - NECROTISING FASCIITIS [None]
  - PNEUMONIA LEGIONELLA [None]
  - RHEUMATOID ARTHRITIS [None]
  - SYSTEMIC INFLAMMATORY RESPONSE SYNDROME [None]
  - TACHYARRHYTHMIA [None]
